FAERS Safety Report 6993879-0 (Version None)
Quarter: 2010Q3

REPORT INFORMATION
  Report Type: 
  Country: None (occurrence: None)
  Receive Date: 20100917
  Receipt Date: 20091029
  Transmission Date: 20110219
  Serious: No
  Sender: FDA-Public Use
  Company Number: US-ASTRAZENECA-2009SE23549

PATIENT
  Age: 47 Year
  Sex: Female

DRUGS (3)
  1. SEROQUEL XR [Suspect]
     Route: 048
  2. XANAX [Concomitant]
  3. SYNTHROID [Concomitant]

REACTIONS (3)
  - HYPOMANIA [None]
  - INSOMNIA [None]
  - PANIC ATTACK [None]
